FAERS Safety Report 10019805 (Version 1)
Quarter: 2014Q1

REPORT INFORMATION
  Report Type: Spontaneous
  Country: US (occurrence: US)
  Receive Date: 20140318
  Receipt Date: 20140318
  Transmission Date: 20141002
  Serious: No
  Sender: FDA-Public Use
  Company Number: US-GALDERMA-US13004094

PATIENT
  Age: 31 Year
  Sex: Female

DRUGS (6)
  1. MIRVASO (BRIMONIDINE) TOPICAL GEL, 0.33% [Suspect]
     Indication: ROSACEA
     Dosage: 0.33%
     Route: 061
     Dates: start: 201311, end: 201311
  2. CERAVE HYDRATING CLEANSER [Concomitant]
     Indication: THERAPEUTIC SKIN CARE TOPICAL
     Route: 061
  3. CERAVE PM MOISTURIZER [Concomitant]
     Indication: DRY SKIN PROPHYLAXIS
     Route: 061
  4. THE BODY SHOP COSMETICS [Concomitant]
     Indication: THERAPEUTIC SKIN CARE TOPICAL
     Route: 061
  5. ZYRTEC (CETIRIZINE) [Concomitant]
     Indication: HYPERSENSITIVITY
     Route: 061
  6. BIONECT CREAM (HYALURONIC ACID SODIUM SALT) [Concomitant]
     Indication: ROSACEA
     Dosage: 0.2%
     Route: 061
     Dates: start: 2012, end: 201311

REACTIONS (8)
  - Swelling [Recovering/Resolving]
  - Feeling hot [Recovering/Resolving]
  - Pallor [Recovered/Resolved]
  - Flushing [Recovering/Resolving]
  - Erythema [Recovering/Resolving]
  - Skin warm [Recovering/Resolving]
  - Off label use [Recovered/Resolved]
  - Inappropriate schedule of drug administration [Recovered/Resolved]
